FAERS Safety Report 11302857 (Version 2)
Quarter: 2015Q3

REPORT INFORMATION
  Report Type: Spontaneous
  Country: US (occurrence: US)
  Receive Date: 20150723
  Receipt Date: 20150727
  Transmission Date: 20151125
  Serious: No
  Sender: FDA-Public Use
  Company Number: US-TEVA-580519USA

PATIENT
  Age: 19 Year
  Sex: Female
  Weight: 120 kg

DRUGS (1)
  1. PROAIR HFA [Suspect]
     Active Substance: ALBUTEROL SULFATE
     Indication: DYSPNOEA
     Dates: start: 201504

REACTIONS (2)
  - Drug effect decreased [Unknown]
  - Cough [Unknown]

NARRATIVE: CASE EVENT DATE: 201506
